FAERS Safety Report 9714084 (Version 2)
Quarter: 2013Q4

REPORT INFORMATION
  Report Type: Spontaneous
  Country: US (occurrence: US)
  Receive Date: 20131126
  Receipt Date: 20131227
  Transmission Date: 20140711
  Serious: No
  Sender: FDA-Public Use
  Company Number: US-PFIZER INC-2013336289

PATIENT
  Age: 55 Year
  Sex: Female
  Weight: 77.1 kg

DRUGS (5)
  1. CELEBREX [Suspect]
     Indication: BACK PAIN
     Dosage: 200 MG, DAILY
  2. PRISTIQ [Suspect]
     Indication: DEPRESSION
     Dosage: 50 MG, DAILY
  3. PRISTIQ [Suspect]
     Indication: ANXIETY
  4. LYRICA [Suspect]
     Indication: NEURALGIA
     Dosage: 150 MG, DAILY
     Dates: end: 2012
  5. DURAGESIC [Concomitant]
     Indication: PAIN
     Dosage: 100 UG, EVERY 3 DAYS

REACTIONS (4)
  - Back injury [Unknown]
  - Oral infection [Not Recovered/Not Resolved]
  - Speech disorder [Not Recovered/Not Resolved]
  - Drug ineffective [Unknown]
